FAERS Safety Report 18461123 (Version 1)
Quarter: 2020Q4

REPORT INFORMATION
  Report Type: Report from Study
  Country: None (occurrence: CA)
  Receive Date: 20201104
  Receipt Date: 20201104
  Transmission Date: 20210114
  Serious: Yes (Hospitalization)
  Sender: FDA-Public Use
  Company Number: CA-ABBVIE-20K-028-3635674-00

PATIENT
  Age: 56 Year
  Sex: Female

DRUGS (1)
  1. HUMIRA [Suspect]
     Active Substance: ADALIMUMAB
     Indication: HIDRADENITIS
     Route: 058
     Dates: start: 20201021, end: 20201021

REACTIONS (5)
  - Middle insomnia [Unknown]
  - Swollen tongue [Unknown]
  - Nervousness [Unknown]
  - Peripheral swelling [Unknown]
  - Urticaria [Unknown]

NARRATIVE: CASE EVENT DATE: 202010
